FAERS Safety Report 9967112 (Version 1)
Quarter: 2014Q1

REPORT INFORMATION
  Report Type: Spontaneous
  Country: US (occurrence: US)
  Receive Date: 20140305
  Receipt Date: 20140305
  Transmission Date: 20141002
  Serious: No
  Sender: FDA-Public Use
  Company Number: US-ABBVIE-13P-163-1138334-00

PATIENT
  Age: 61 Year
  Sex: Female
  Weight: 75.36 kg

DRUGS (10)
  1. HUMIRA [Suspect]
     Indication: RHEUMATOID ARTHRITIS
     Dates: start: 201302
  2. ALLOPURINOL [Concomitant]
     Indication: GOUT
  3. DEXILANT [Concomitant]
     Indication: OESOPHAGITIS
  4. ENALAPRIL [Concomitant]
     Indication: HYPERTENSION
  5. VICODIN ES [Concomitant]
     Indication: PAIN
  6. AMBIEN [Concomitant]
     Indication: INSOMNIA
  7. VITAMIN B COMPLEX [Concomitant]
     Indication: SUPPLEMENTATION THERAPY
  8. FISH OIL [Concomitant]
     Indication: SUPPLEMENTATION THERAPY
  9. FIBERCON [Concomitant]
     Indication: IRRITABLE BOWEL SYNDROME
  10. MULTIVITAMIN [Concomitant]
     Indication: SUPPLEMENTATION THERAPY

REACTIONS (2)
  - Device malfunction [Unknown]
  - Injection site pain [Not Recovered/Not Resolved]
